FAERS Safety Report 6838551-2 (Version None)
Quarter: 2010Q3

REPORT INFORMATION
  Report Type: 
  Country: None (occurrence: None)
  Receive Date: 20100713
  Receipt Date: 20070615
  Transmission Date: 20110219
  Serious: No
  Sender: FDA-Public Use
  Company Number: US-PFIZER INC-2007050457

PATIENT
  Sex: Male

DRUGS (6)
  1. CHANTIX [Suspect]
     Indication: SMOKING CESSATION THERAPY
     Route: 048
     Dates: start: 20070604
  2. ADVAIR DISKUS 100/50 [Concomitant]
     Dosage: 250/50
  3. ALLOPURINOL [Concomitant]
     Indication: GOUT
  4. ATENOLOL [Concomitant]
  5. LIPITOR [Concomitant]
  6. CARDURA [Concomitant]

REACTIONS (1)
  - CHILLS [None]
